FAERS Safety Report 6305193-7 (Version None)
Quarter: 2009Q3

REPORT INFORMATION
  Report Type: 
  Country: None (occurrence: None)
  Receive Date: 20090811
  Receipt Date: 20090730
  Transmission Date: 20100115
  Serious: Yes (Other)
  Sender: FDA-Public Use
  Company Number: JP-SANOFI-SYNTHELABO-A01200908206

PATIENT
  Sex: Female

DRUGS (4)
  1. ANTIPARKINSON DRUG [Concomitant]
     Indication: DRUG USE FOR UNKNOWN INDICATION
     Dosage: UNK
     Route: 065
  2. DEPAS [Concomitant]
     Indication: DRUG USE FOR UNKNOWN INDICATION
     Dosage: UNK
     Route: 065
  3. MYSLEE [Suspect]
     Indication: INSOMNIA
     Dosage: UNK
     Route: 048
  4. SEROQUEL [Suspect]
     Indication: DELIRIUM
     Route: 048

REACTIONS (1)
  - RESPIRATORY DEPRESSION [None]
